FAERS Safety Report 4954986-7 (Version None)
Quarter: 2006Q1

REPORT INFORMATION
  Report Type: 
  Country: None (occurrence: None)
  Receive Date: 20060322
  Receipt Date: 20060308
  Transmission Date: 20060701
  Serious: Yes (Other)
  Sender: FDA-Public Use
  Company Number: 2006033666

PATIENT
  Age: 33 Year
  Sex: Female

DRUGS (5)
  1. ZYVOX [Suspect]
     Indication: ILL-DEFINED DISORDER
  2. EFFEXOR XR [Suspect]
     Indication: MAJOR DEPRESSION
     Dosage: 225 MG (225 MG, 1 IN 1 D), ORAL
     Route: 048
  3. EFFEXOR XR [Suspect]
     Indication: SOCIAL PHOBIA
     Dosage: 225 MG (225 MG, 1 IN 1 D), ORAL
     Route: 048
  4. METHOTREXATE [Concomitant]
  5. ETANERCEPT [Concomitant]

REACTIONS (8)
  - COORDINATION ABNORMAL [None]
  - DRUG INTERACTION [None]
  - FALL [None]
  - MEMORY IMPAIRMENT [None]
  - NYSTAGMUS [None]
  - SEROTONIN SYNDROME [None]
  - STRESS [None]
  - SYNCOPE [None]
